FAERS Safety Report 8925443 (Version 1)
Quarter: 2012Q4

REPORT INFORMATION
  Report Type: 
  Country: US (occurrence: US)
  Receive Date: 20121126
  Receipt Date: 20121126
  Transmission Date: 20130627
  Serious: Yes (Hospitalization)
  Sender: FDA-Public Use
  Company Number: US-ACTELION-A-NJ2012-74953

PATIENT
  Age: 84 Year
  Sex: Female

DRUGS (3)
  1. TRACLEER [Suspect]
     Indication: PULMONARY ARTERIAL HYPERTENSION
     Dosage: UNK
     Route: 048
     Dates: start: 20110730
  2. SILDENAFIL [Concomitant]
  3. COUMADIN [Concomitant]

REACTIONS (4)
  - Epistaxis [Recovered/Resolved]
  - Anaemia [Unknown]
  - Transfusion [Unknown]
  - Productive cough [Unknown]
